FAERS Safety Report 15654423 (Version 1)
Quarter: 2018Q4

REPORT INFORMATION
  Report Type: Spontaneous
  Country: CN (occurrence: CN)
  Receive Date: 20181126
  Receipt Date: 20181126
  Transmission Date: 20190205
  Serious: Yes (Other)
  Sender: FDA-Public Use
  Company Number: CN-ROCHE-2218921

PATIENT
  Age: 29 Year
  Sex: Female
  Weight: 59.5 kg

DRUGS (9)
  1. DOCETAXEL. [Suspect]
     Active Substance: DOCETAXEL
     Route: 065
     Dates: start: 20180330
  2. TRASTUZUMAB. [Suspect]
     Active Substance: TRASTUZUMAB
     Indication: INVASIVE BREAST CARCINOMA
     Route: 065
     Dates: start: 20180216
  3. TRASTUZUMAB. [Suspect]
     Active Substance: TRASTUZUMAB
     Route: 065
     Dates: start: 20180420
  4. CARBOPLATIN. [Suspect]
     Active Substance: CARBOPLATIN
     Indication: INVASIVE BREAST CARCINOMA
     Route: 065
     Dates: start: 20180216
  5. TRASTUZUMAB. [Suspect]
     Active Substance: TRASTUZUMAB
     Route: 065
     Dates: start: 20180309
  6. TRASTUZUMAB. [Suspect]
     Active Substance: TRASTUZUMAB
     Route: 065
     Dates: start: 20180330
  7. DOCETAXEL. [Suspect]
     Active Substance: DOCETAXEL
     Indication: INVASIVE BREAST CARCINOMA
     Route: 065
     Dates: start: 20180216
  8. DOCETAXEL. [Suspect]
     Active Substance: DOCETAXEL
     Route: 065
     Dates: start: 20180309
  9. DOCETAXEL. [Suspect]
     Active Substance: DOCETAXEL
     Route: 065
     Dates: start: 20180420

REACTIONS (3)
  - Hyperpyrexia [Unknown]
  - Diarrhoea [Unknown]
  - Bone marrow failure [Unknown]
